FAERS Safety Report 18611489 (Version 1)
Quarter: 2020Q4

REPORT INFORMATION
  Report Type: Spontaneous
  Country: US (occurrence: US)
  Receive Date: 20201209
  Receipt Date: 20201209
  Transmission Date: 20210114
  Serious: Yes (Hospitalization)
  Sender: FDA-Public Use
  Company Number: None

PATIENT
  Age: 72 Year
  Sex: Female
  Weight: 91 kg

DRUGS (1)
  1. CASIRIVIMAB AND IMDEVIMAB (REGN10933 AND REGN10987) [Suspect]
     Active Substance: CASIRIVIMAB\IMDEVIMAB
     Indication: COVID-19
     Dosage: ?          OTHER FREQUENCY:ONCE;?
     Route: 041
     Dates: start: 20201208, end: 20201208

REACTIONS (6)
  - Dysphagia [None]
  - Localised oedema [None]
  - Inflammation [None]
  - Pharyngeal swelling [None]
  - Therapy non-responder [None]
  - Paraesthesia [None]

NARRATIVE: CASE EVENT DATE: 20201208
